FAERS Safety Report 15053058 (Version 1)
Quarter: 2018Q2

REPORT INFORMATION
  Report Type: Spontaneous
  Country: US (occurrence: US)
  Receive Date: 20180622
  Receipt Date: 20180622
  Transmission Date: 20180711
  Serious: Yes (Other)
  Sender: FDA-Public Use
  Company Number: US-GLAXOSMITHKLINE-US2018109133

PATIENT
  Age: 45 Year
  Sex: Female

DRUGS (10)
  1. CEPHALEXIN. [Concomitant]
     Active Substance: CEPHALEXIN
  2. PREDNISONE. [Concomitant]
     Active Substance: PREDNISONE
  3. PRAVASTATIN. [Concomitant]
     Active Substance: PRAVASTATIN
  4. VITAMIN D2 [Concomitant]
     Active Substance: ERGOCALCIFEROL
  5. GABAPENTIN. [Concomitant]
     Active Substance: GABAPENTIN
  6. NAPROXEN. [Concomitant]
     Active Substance: NAPROXEN
  7. VALSARTAN. [Concomitant]
     Active Substance: VALSARTAN
  8. IRON [Concomitant]
     Active Substance: IRON
     Route: 042
  9. BENLYSTA [Suspect]
     Active Substance: BELIMUMAB
     Indication: SYSTEMIC LUPUS ERYTHEMATOSUS
     Dosage: UNK UNK, CYC
     Route: 042
     Dates: start: 201707
  10. DULOXETINE. [Concomitant]
     Active Substance: DULOXETINE

REACTIONS (12)
  - Rash [Recovering/Resolving]
  - Dizziness [Recovered/Resolved]
  - Pain [Unknown]
  - Drug dose omission [Recovered/Resolved]
  - Pain in extremity [Recovered/Resolved]
  - Urinary tract infection [Recovered/Resolved]
  - Hypertension [Recovering/Resolving]
  - Systemic lupus erythematosus [Recovered/Resolved]
  - Vitamin D deficiency [Recovered/Resolved]
  - Malaise [Unknown]
  - Blood cholesterol increased [Recovering/Resolving]
  - Anaemia [Recovering/Resolving]

NARRATIVE: CASE EVENT DATE: 201804
